FAERS Safety Report 22106823 (Version 3)
Quarter: 2025Q1

REPORT INFORMATION
  Report Type: Report from Study
  Country: JP (occurrence: JP)
  Receive Date: 20230317
  Receipt Date: 20250308
  Transmission Date: 20250409
  Serious: Yes (Hospitalization, Disabling, Other)
  Sender: ABBVIE
  Company Number: JP-TAKEDA-2023TJP003403

PATIENT
  Age: 82 Year
  Sex: Male
  Weight: 68.9 kg

DRUGS (1)
  1. LEUPROLIDE ACETATE [Suspect]
     Active Substance: LEUPROLIDE ACETATE
     Indication: Bulbospinal muscular atrophy congenital
     Dosage: 11.25 MILLIGRAM, Q3MONTHS
     Route: 058
     Dates: start: 20170926, end: 20190806

REACTIONS (1)
  - Thalamus haemorrhage [Recovered/Resolved with Sequelae]

NARRATIVE: CASE EVENT DATE: 20190923
